FAERS Safety Report 17265159 (Version 2)
Quarter: 2021Q1

REPORT INFORMATION
  Report Type: Spontaneous
  Country: CA (occurrence: CA)
  Receive Date: 20200113
  Receipt Date: 20210121
  Transmission Date: 20210419
  Serious: Yes (Other)
  Sender: FDA-Public Use
  Company Number: CA-ROCHE-2515435

PATIENT
  Age: 58 Year
  Sex: Female

DRUGS (9)
  1. PLAQUENIL [Suspect]
     Active Substance: HYDROXYCHLOROQUINE SULFATE
     Indication: RHEUMATOID ARTHRITIS
     Route: 065
  2. HYDROXYCHLOROQUINE SULFATE. [Suspect]
     Active Substance: HYDROXYCHLOROQUINE SULFATE
     Indication: PRODUCT USED FOR UNKNOWN INDICATION
     Route: 065
  3. METHOTREXATE. [Suspect]
     Active Substance: METHOTREXATE
     Indication: RHEUMATOID ARTHRITIS
     Route: 048
  4. ORENCIA [Suspect]
     Active Substance: ABATACEPT
     Indication: PRODUCT USED FOR UNKNOWN INDICATION
     Dosage: 11 MONTHS
     Route: 042
  5. HYDROXYCHLOROQUINE [Suspect]
     Active Substance: HYDROXYCHLOROQUINE
     Indication: PRODUCT USED FOR UNKNOWN INDICATION
     Route: 065
  6. ENBREL [Suspect]
     Active Substance: ETANERCEPT
     Indication: RHEUMATOID ARTHRITIS
     Dosage: 4 MONTHS
     Route: 058
  7. ACTEMRA [Suspect]
     Active Substance: TOCILIZUMAB
     Indication: PRODUCT USED FOR UNKNOWN INDICATION
     Dosage: 3 YERAS
     Route: 042
  8. CODEINE [Suspect]
     Active Substance: CODEINE
     Indication: PRODUCT USED FOR UNKNOWN INDICATION
     Route: 065
  9. HYDROXYCHLOROQUINE SULFATE. [Suspect]
     Active Substance: HYDROXYCHLOROQUINE SULFATE
     Route: 058

REACTIONS (18)
  - Colitis ulcerative [Unknown]
  - Contraindicated product administered [Unknown]
  - Insomnia [Unknown]
  - Joint swelling [Unknown]
  - Pharyngeal oedema [Unknown]
  - Red blood cell sedimentation rate abnormal [Unknown]
  - Treatment failure [Unknown]
  - Herpes zoster [Unknown]
  - Pruritus [Unknown]
  - Illness [Unknown]
  - Drug ineffective [Unknown]
  - Pain in extremity [Unknown]
  - Restless legs syndrome [Unknown]
  - Arthralgia [Unknown]
  - Musculoskeletal pain [Unknown]
  - Malaise [Unknown]
  - Poor quality sleep [Unknown]
  - Peripheral swelling [Unknown]
